FAERS Safety Report 25647997 (Version 1)
Quarter: 2025Q3

REPORT INFORMATION
  Report Type: Spontaneous
  Country: US (occurrence: US)
  Receive Date: 20250806
  Receipt Date: 20250806
  Transmission Date: 20251021
  Serious: Yes (Hospitalization, Other)
  Sender: ROCHE
  Company Number: US-ROCHE-10000350862

PATIENT
  Sex: Female

DRUGS (1)
  1. ACTEMRA [Suspect]
     Active Substance: TOCILIZUMAB
     Indication: Product used for unknown indication
     Route: 058

REACTIONS (8)
  - Injury [Recovered/Resolved]
  - Wrist fracture [Recovered/Resolved with Sequelae]
  - Arthritis [Recovered/Resolved]
  - Wrong technique in product usage process [Unknown]
  - Arthralgia [Recovered/Resolved]
  - Accident [Unknown]
  - Product complaint [Unknown]
  - Device difficult to use [Unknown]
